FAERS Safety Report 9263862 (Version 2)
Quarter: 2013Q2

REPORT INFORMATION
  Report Type: Report from Study
  Country: DE (occurrence: DE)
  Receive Date: 20130430
  Receipt Date: 20130517
  Transmission Date: 20140414
  Serious: Yes (Hospitalization, Other)
  Sender: FDA-Public Use
  Company Number: DE-GENZYME-THYM-1003772

PATIENT
  Age: 31 Year
  Sex: Male
  Weight: 58 kg

DRUGS (16)
  1. DECORTIN-H [Suspect]
     Indication: RENAL TRANSPLANT
     Dosage: 75 MG, UNK
     Route: 048
     Dates: start: 200902
  2. DECORTIN-H [Suspect]
     Dosage: 50 MG, UNK
     Route: 048
     Dates: start: 200902, end: 20090219
  3. DECORTIN-H [Suspect]
     Dosage: 25 MG, UNK
     Route: 048
     Dates: start: 20090220
  4. CARMEN [Concomitant]
     Indication: PRODUCT USED FOR UNKNOWN INDICATION
     Dosage: 20 MG, QD
     Route: 065
  5. NEBILET [Concomitant]
     Indication: PRODUCT USED FOR UNKNOWN INDICATION
     Dosage: 5 MG, QD
     Route: 065
  6. PANTOZOL [Concomitant]
     Indication: PRODUCT USED FOR UNKNOWN INDICATION
     Dosage: 40 MG, BID
     Route: 065
  7. VALCYTE [Concomitant]
     Indication: ANTIVIRAL PROPHYLAXIS
     Dosage: 450 MG, QD
     Route: 065
  8. VALCYTE [Concomitant]
     Dosage: UNK
     Route: 065
     Dates: start: 2009
  9. AMPHO MORONAL [Concomitant]
     Indication: PRODUCT USED FOR UNKNOWN INDICATION
     Dosage: UNK (6X/DAY)
     Route: 065
  10. IDEOS [Concomitant]
     Indication: PRODUCT USED FOR UNKNOWN INDICATION
     Dosage: UNK
     Route: 065
  11. ARANESP [Concomitant]
     Indication: PRODUCT USED FOR UNKNOWN INDICATION
     Dosage: 50 MCG, 1X/W
     Route: 065
  12. THYMOGLOBULINE [Suspect]
     Indication: RENAL TRANSPLANT
     Dosage: 95 MG (1.5 MG/KG BW/ DAY FOR 4 DAYS); INDUCTION THERAPY
     Route: 065
     Dates: start: 20090216, end: 20090219
  13. TACROLIMUS [Suspect]
     Indication: RENAL TRANSPLANT
     Dosage: 12.5 MG, UNK
     Route: 048
     Dates: start: 20090216, end: 20090219
  14. TACROLIMUS [Suspect]
     Dosage: 11 MG, UNK
     Route: 048
     Dates: start: 20090220
  15. TACROLIMUS [Suspect]
     Dosage: 8 MG, QD
     Route: 065
  16. CELLCEPT [Suspect]
     Indication: RENAL TRANSPLANT
     Dosage: 2000 MG, UNK
     Route: 048
     Dates: start: 20090217

REACTIONS (10)
  - Mitral valve incompetence [Unknown]
  - Renal failure acute [Unknown]
  - Hypertension [Unknown]
  - Urinary tract infection [Unknown]
  - Dehydration [Unknown]
  - Flushing [Unknown]
  - Nausea [Unknown]
  - Oral herpes [Unknown]
  - Perirenal haematoma [Recovered/Resolved with Sequelae]
  - Haemoglobin decreased [Recovered/Resolved with Sequelae]
